FAERS Safety Report 17086891 (Version 3)
Quarter: 2019Q4

REPORT INFORMATION
  Report Type: Report from Study
  Country: DE (occurrence: DE)
  Receive Date: 20191128
  Receipt Date: 20191219
  Transmission Date: 20200122
  Serious: Yes (Hospitalization, Other)
  Sender: FDA-Public Use
  Company Number: DE-BRISTOL-MYERS SQUIBB COMPANY-BMS-2019-111571

PATIENT
  Age: 72 Year
  Sex: Male

DRUGS (9)
  1. CANDECOR [Concomitant]
     Active Substance: CANDESARTAN CILEXETIL
     Indication: CEREBROVASCULAR DISORDER
     Route: 065
  2. DEXAMETHASON [DEXAMETHASONE] [Concomitant]
     Active Substance: DEXAMETHASONE
     Indication: NEOPLASM
     Dosage: 4 MILLIGRAM
     Route: 065
  3. ATORVASTATIN [Concomitant]
     Active Substance: ATORVASTATIN
     Indication: METABOLIC DISORDER
     Dosage: 40 MILLIGRAM
     Route: 065
  4. NIVOLUMAB [Suspect]
     Active Substance: NIVOLUMAB
     Indication: RENAL CELL CARCINOMA
     Dosage: 3 MILLIGRAM/KILOGRAM, Q3WK
     Route: 042
     Dates: start: 20191001, end: 20191022
  5. MARCUMAR [Concomitant]
     Active Substance: PHENPROCOUMON
     Indication: CEREBROVASCULAR DISORDER
     Route: 065
  6. CANDECOR [Concomitant]
     Active Substance: CANDESARTAN CILEXETIL
     Indication: CARDIOVASCULAR DISORDER
     Dosage: 16 MILLIGRAM
     Route: 065
  7. NOVAMINSULFON [Concomitant]
     Active Substance: METAMIZOLE
     Indication: NEOPLASM
     Dosage: 40 GTT DROPS
     Route: 065
  8. IPILIMUMAB [Suspect]
     Active Substance: IPILIMUMAB
     Indication: RENAL CELL CARCINOMA
     Dosage: 1 MILLIGRAM/KILOGRAM, Q3WK
     Route: 042
     Dates: start: 20191001, end: 20191022
  9. MARCUMAR [Concomitant]
     Active Substance: PHENPROCOUMON
     Indication: CARDIOVASCULAR DISORDER
     Dosage: ACCORDING TO PLAN
     Route: 065

REACTIONS (1)
  - Immune-mediated hepatitis [Recovered/Resolved]

NARRATIVE: CASE EVENT DATE: 20191112
